FAERS Safety Report 5649433-6 (Version None)
Quarter: 2008Q1

REPORT INFORMATION
  Report Type: 
  Country: None (occurrence: None)
  Receive Date: 20080304
  Receipt Date: 20080220
  Transmission Date: 20080703
  Serious: Yes (Death, Life-Threatening)
  Sender: FDA-Public Use
  Company Number: IT-BAYER-200710202GDS

PATIENT
  Age: 65 Year
  Sex: Female
  Weight: 50 kg

DRUGS (9)
  1. SORAFENIB [Suspect]
     Indication: NON-SMALL CELL LUNG CANCER
     Dosage: TOTAL DAILY DOSE: 800 MG  UNIT DOSE: 200 MG
     Route: 048
     Dates: start: 20061005, end: 20070404
  2. CARBOPLATIN [Suspect]
     Indication: NON-SMALL CELL LUNG CANCER
     Route: 042
  3. PACLITAXEL [Suspect]
     Indication: NON-SMALL CELL LUNG CANCER
     Route: 042
  4. PREVEX [Concomitant]
     Indication: HYPERTENSION
     Route: 048
     Dates: start: 20061205
  5. PREVEX [Concomitant]
     Route: 048
     Dates: start: 20010101
  6. ASPIRIN [Concomitant]
     Indication: HYPERTENSION
     Route: 048
     Dates: start: 20010101
  7. DELTACORTENE [Concomitant]
     Indication: FATIGUE
     Route: 048
     Dates: start: 20061002
  8. RANIDIL [Concomitant]
     Indication: PROPHYLAXIS
     Route: 048
     Dates: start: 19850101
  9. LEXOTAN [Concomitant]
     Indication: DEPRESSION
     Route: 048
     Dates: start: 20061002

REACTIONS (7)
  - FEBRILE NEUTROPENIA [None]
  - HYPOTENSION [None]
  - NEUROPATHY PERIPHERAL [None]
  - NON-SMALL CELL LUNG CANCER [None]
  - PETECHIAE [None]
  - PYREXIA [None]
  - STOMATITIS [None]
